FAERS Safety Report 16641863 (Version 1)
Quarter: 2019Q3

REPORT INFORMATION
  Report Type: Spontaneous
  Country: US (occurrence: US)
  Receive Date: 20190729
  Receipt Date: 20190729
  Transmission Date: 20191004
  Serious: Yes (Other)
  Sender: FDA-Public Use
  Company Number: US-BAYER-2019-134293

PATIENT
  Sex: Female

DRUGS (8)
  1. TYLENOL [Concomitant]
     Active Substance: ACETAMINOPHEN
     Dosage: UNK
  2. LORCET [LORATADINE] [Concomitant]
     Indication: PAIN
     Dosage: UNK(2)
     Route: 065
  3. PAIN STOPPER EXTRA [Suspect]
     Active Substance: ACETAMINOPHEN\ASPIRIN\CAFFEINE\SALICYLAMIDE
     Indication: PAIN
     Dosage: 2 DF, Q8HR
     Route: 048
     Dates: start: 2009
  4. PAIN STOPPER EXTRA [Suspect]
     Active Substance: ACETAMINOPHEN\ASPIRIN\CAFFEINE\SALICYLAMIDE
     Indication: PAIN
     Dosage: 1 DF
  5. ALEVE [Suspect]
     Active Substance: NAPROXEN SODIUM
     Indication: PAIN
     Dosage: UNK
  6. SALONPAS [MENTHOL;METHYL SALICYLATE] [Concomitant]
     Dosage: UNK
  7. SOMA [Concomitant]
     Active Substance: CARISOPRODOL
     Indication: PAIN
     Dosage: UNK(2)
  8. VICODIN [Concomitant]
     Active Substance: ACETAMINOPHEN\HYDROCODONE BITARTRATE
     Indication: PAIN
     Dosage: UNK(2)
     Route: 065

REACTIONS (5)
  - Drug dependence [Unknown]
  - Drug ineffective [Unknown]
  - Drug intolerance [Unknown]
  - Back pain [Unknown]
  - Cardiac discomfort [Unknown]
